FAERS Safety Report 24609087 (Version 2)
Quarter: 2024Q4

REPORT INFORMATION
  Report Type: Spontaneous
  Country: US (occurrence: US)
  Receive Date: 20241112
  Receipt Date: 20241126
  Transmission Date: 20250115
  Serious: Yes (Other)
  Sender: AUROBINDO
  Company Number: US-MLMSERVICE-20241023-PI236732-00218-1

PATIENT
  Age: 79 Year
  Sex: Female

DRUGS (1)
  1. METHOTREXATE [Suspect]
     Active Substance: METHOTREXATE
     Indication: Psoriasis
     Dosage: 15 MILLIGRAM, EVERY WEEK (SHE HAD BEEN TAKING 15 MG OF METHOTREXATE WEEKLY FOR OVER 18 YEARS)
     Route: 065

REACTIONS (1)
  - Epidermal necrosis [Unknown]
